FAERS Safety Report 9690800 (Version 1)
Quarter: 2013Q4

REPORT INFORMATION
  Report Type: Spontaneous
  Country: US (occurrence: None)
  Receive Date: 20131114
  Receipt Date: 20131114
  Transmission Date: 20140711
  Serious: Yes (Other)
  Sender: FDA-Public Use
  Company Number: None

PATIENT
  Age: 23 Day
  Sex: Male
  Weight: 2.3 kg

DRUGS (1)
  1. CYCLOMYDRIL [Suspect]
     Indication: OPHTHALMOLOGICAL EXAMINATION
     Route: 047

REACTIONS (1)
  - Blood pressure increased [None]
